FAERS Safety Report 15995485 (Version 1)
Quarter: 2019Q1

REPORT INFORMATION
  Report Type: Spontaneous
  Country: DE (occurrence: DE)
  Receive Date: 20190222
  Receipt Date: 20190222
  Transmission Date: 20190418
  Serious: Yes (Hospitalization, Other)
  Sender: FDA-Public Use
  Company Number: DE-BIOVITRUM-2019DE0246

PATIENT
  Age: 21 Year
  Sex: Female
  Weight: 38 kg

DRUGS (2)
  1. KINERET [Suspect]
     Active Substance: ANAKINRA
     Dosage: 100 MG T?GLICH
     Route: 058
     Dates: start: 201306, end: 201809
  2. CORTISON [Suspect]
     Active Substance: CORTISONE ACETATE

REACTIONS (14)
  - Abdominal discomfort [Unknown]
  - Aspergillus infection [Recovered/Resolved with Sequelae]
  - Pyrexia [Unknown]
  - Scar [Unknown]
  - Haemangioma [Unknown]
  - Weight decreased [Unknown]
  - Fibrosis [Unknown]
  - Productive cough [Unknown]
  - Fungal skin infection [Unknown]
  - Cough [Unknown]
  - Immune system disorder [Unknown]
  - Dyspnoea [Unknown]
  - Haemoptysis [Unknown]
  - Chills [Unknown]

NARRATIVE: CASE EVENT DATE: 201809
